FAERS Safety Report 7081969-6 (Version None)
Quarter: 2010Q4

REPORT INFORMATION
  Report Type: 
  Country: None (occurrence: None)
  Receive Date: 20101103
  Receipt Date: 20101027
  Transmission Date: 20110411
  Serious: Yes (Other)
  Sender: FDA-Public Use
  Company Number: GB-PFIZER INC-2010137192

PATIENT
  Age: 78 Year
  Sex: Male
  Weight: 67 kg

DRUGS (10)
  1. GLIPIZIDE [Suspect]
     Indication: TYPE 2 DIABETES MELLITUS
     Dosage: 10 MG, 2X/DAY
     Route: 048
     Dates: start: 19981008
  2. TRIMETHOPRIM [Interacting]
     Indication: URINARY TRACT INFECTION
     Dosage: 200 MG, 2X/DAY
     Route: 048
     Dates: start: 20101011, end: 20101013
  3. AMLODIPINE [Concomitant]
  4. ACETYLSALICYLIC ACID [Concomitant]
  5. DOXAZOSIN MESILATE [Concomitant]
  6. ENALAPRIL [Concomitant]
  7. GAVISCON [Concomitant]
  8. METFORMIN [Concomitant]
  9. OMEPRAZOLE [Concomitant]
  10. SIMVASTATIN [Concomitant]

REACTIONS (3)
  - DIARRHOEA [None]
  - DRUG INTERACTION [None]
  - HYPOGLYCAEMIA [None]
